FAERS Safety Report 14356999 (Version 2)
Quarter: 2018Q2

REPORT INFORMATION
  Report Type: Spontaneous
  Country: US (occurrence: US)
  Receive Date: 20180105
  Receipt Date: 20180619
  Transmission Date: 20180711
  Serious: No
  Sender: FDA-Public Use
  Company Number: US-PFIZER INC-2018002949

PATIENT
  Age: 12 Year
  Sex: Male

DRUGS (1)
  1. GENOTROPIN [Suspect]
     Active Substance: SOMATROPIN
     Indication: GROWTH HORMONE DEFICIENCY
     Dosage: 1.6 MG, DAILY (7 DAYS/WEEK)
     Dates: start: 201710

REACTIONS (3)
  - Injection site pain [Unknown]
  - Injection site bruising [Unknown]
  - Injection site nodule [Unknown]
